FAERS Safety Report 7214624-X (Version None)
Quarter: 2010Q4

REPORT INFORMATION
  Report Type: 
  Country: None (occurrence: None)
  Receive Date: 20101126
  Receipt Date: 20100420
  Transmission Date: 20110411
  Serious: Yes (Disabling)
  Sender: FDA-Public Use
  Company Number: CIP10000648

PATIENT
  Sex: Male

DRUGS (5)
  1. ACTONEL [Suspect]
     Indication: OSTEOPOROSIS
     Dosage: 150 MG ONE DOSE ONLY, ORAL
     Route: 048
     Dates: start: 20100217, end: 20100217
  2. TREXALL [Concomitant]
  3. FOLIC ACID [Concomitant]
  4. CELEBREX [Concomitant]
  5. ANTIBIOTICS [Concomitant]

REACTIONS (3)
  - DIARRHOEA [None]
  - IMPAIRED WORK ABILITY [None]
  - MYALGIA [None]
